FAERS Safety Report 5812528-8 (Version None)
Quarter: 2008Q3

REPORT INFORMATION
  Report Type: 
  Country: None (occurrence: None)
  Receive Date: 20080717
  Receipt Date: 20080707
  Transmission Date: 20090109
  Serious: Yes (Other)
  Sender: FDA-Public Use
  Company Number: US-JNJFOC-20080702502

PATIENT
  Sex: Female
  Weight: 58.97 kg

DRUGS (4)
  1. TOPAMAX [Suspect]
     Indication: DRUG THERAPY
  2. TOPROL-XL [Concomitant]
     Indication: BLOOD PRESSURE
  3. ZOLOFT [Concomitant]
     Indication: AFFECTIVE DISORDER
  4. NORVASC [Concomitant]
     Indication: BLOOD PRESSURE

REACTIONS (6)
  - CLOSTRIDIAL INFECTION [None]
  - DEAFNESS UNILATERAL [None]
  - DIVERTICULITIS [None]
  - MEMORY IMPAIRMENT [None]
  - NERVE INJURY [None]
  - TINNITUS [None]
